FAERS Safety Report 5843578-3 (Version None)
Quarter: 2008Q3

REPORT INFORMATION
  Report Type: 
  Country: None (occurrence: None)
  Receive Date: 20080813
  Receipt Date: 20080508
  Transmission Date: 20090109
  Serious: No
  Sender: FDA-Public Use
  Company Number: A0726868A

PATIENT
  Age: 61 Year
  Sex: Female

DRUGS (2)
  1. COREG CR [Suspect]
     Indication: DRUG USE FOR UNKNOWN INDICATION
     Dosage: 80MG PER DAY
     Route: 048
     Dates: start: 20080501, end: 20080501
  2. MULTIPLE MEDICATIONS [Concomitant]

REACTIONS (1)
  - TREMOR [None]
